FAERS Safety Report 15867800 (Version 1)
Quarter: 2019Q1

REPORT INFORMATION
  Report Type: Spontaneous
  Country: US (occurrence: US)
  Receive Date: 20190103
  Receipt Date: 20190103
  Transmission Date: 20190417
  Serious: Yes (Disabling)
  Sender: FDA-Public Use
  Company Number: None

PATIENT
  Age: 70 Year
  Sex: Female
  Weight: 95.25 kg

DRUGS (14)
  1. METFORMIN [Concomitant]
     Active Substance: METFORMIN HYDROCHLORIDE
  2. MULTI VITAMIN [Concomitant]
     Active Substance: VITAMINS
  3. KRILL OIL [Concomitant]
     Active Substance: DIETARY SUPPLEMENT
  4. RIBOFLAVIN [Concomitant]
     Active Substance: RIBOFLAVIN
  5. PROTANDIM [Concomitant]
     Active Substance: DIETARY SUPPLEMENT
  6. GLUCOSE METER [Concomitant]
  7. REGULAR ASPIRIN [Concomitant]
     Active Substance: ASPIRIN
  8. SESTAMIBI [Suspect]
     Active Substance: TECHNETIUM TC-99M SESTAMIBI
  9. NORTRIPYLINE [Concomitant]
  10. VITAMIN D3 [Concomitant]
     Active Substance: CHOLECALCIFEROL
  11. LOSARTAN. [Concomitant]
     Active Substance: LOSARTAN
  12. METOPROLOL. [Concomitant]
     Active Substance: METOPROLOL
  13. ZANTAC [Suspect]
     Active Substance: RANITIDINE HYDROCHLORIDE
  14. OMEGA 3 [Concomitant]
     Active Substance: OMEGA-3 FATTY ACIDS

REACTIONS (6)
  - Headache [None]
  - Seizure [None]
  - Hypoaesthesia [None]
  - Eye pain [None]
  - Dyspnoea [None]
  - Tremor [None]

NARRATIVE: CASE EVENT DATE: 20170316
